FAERS Safety Report 9012640 (Version 1)
Quarter: 2013Q1

REPORT INFORMATION
  Report Type: Report from Study
  Country: DE (occurrence: DE)
  Receive Date: 20130114
  Receipt Date: 20130114
  Transmission Date: 20140127
  Serious: Yes (Other)
  Sender: FDA-Public Use
  Company Number: GXKR2013DE000503

PATIENT
  Sex: 0

DRUGS (6)
  1. MIRTAZAPINE [Suspect]
     Dosage: MATERNAL DOSE: 30 MG/D, 0.-41.1 GW
     Route: 064
  2. CITALOPRAM [Concomitant]
     Dosage: MATERNAL DOSE: 40 MG/D, 0.-30. GW
     Route: 064
  3. VALPROAT [Concomitant]
     Dosage: MATERNAL DOSE: 500 MG/D
     Route: 064
  4. CHLORPROTHIXENE [Concomitant]
     Dosage: MATERNAL DOSE: 50 MG/D
     Route: 064
  5. L-THYROXINE//LEVOTHYROXINE [Concomitant]
     Dosage: MATERNAL DOSE: 100 UG/D
     Route: 064
  6. FOLIC ACID W/POTASSIUM IODIDE/VITAMIN B12 NOS [Concomitant]
     Dosage: MATERNAL DOSE: 0.4 MG/D
     Route: 064

REACTIONS (4)
  - Apnoea neonatal [Recovered/Resolved]
  - Hypoxia [Recovered/Resolved]
  - Cyanosis [Recovered/Resolved]
  - Foetal exposure during pregnancy [Recovered/Resolved]
